FAERS Safety Report 9210593 (Version 2)
Quarter: 2013Q2

REPORT INFORMATION
  Report Type: Spontaneous
  Country: JP (occurrence: JP)
  Receive Date: 20130404
  Receipt Date: 20130412
  Transmission Date: 20140414
  Serious: Yes (Other)
  Sender: FDA-Public Use
  Company Number: JP-009507513-1304JPN000198

PATIENT
  Age: 74 Year
  Sex: Male

DRUGS (4)
  1. MK-0000 [Suspect]
     Route: 065
  2. FAMOTIDINE [Suspect]
     Dosage: UNKNOWN
     Route: 065
  3. AMPICILLIN SODIUM (+) SULBACTAM SODIUM [Suspect]
     Dosage: UNK
     Route: 065
  4. MEROPENEM [Suspect]
     Dosage: UNK
     Route: 065

REACTIONS (1)
  - Clostridium difficile infection [Unknown]
